FAERS Safety Report 25499782 (Version 1)
Quarter: 2025Q2

REPORT INFORMATION
  Report Type: Spontaneous
  Country: US (occurrence: None)
  Receive Date: 20250630
  Receipt Date: 20250630
  Transmission Date: 20250716
  Serious: No
  Sender: FDA-CTU
  Company Number: None

PATIENT
  Age: 29 Year
  Sex: Female
  Weight: 54 kg

DRUGS (1)
  1. CEPHALEXIN [Suspect]
     Active Substance: CEPHALEXIN
     Dosage: FREQUENCY : TWICE A DAY;?

REACTIONS (17)
  - Anxiety [None]
  - Panic attack [None]
  - Depressive symptom [None]
  - Mood swings [None]
  - Anger [None]
  - Irritability [None]
  - Nausea [None]
  - Diarrhoea [None]
  - Dizziness [None]
  - Vertigo [None]
  - Insomnia [None]
  - Restlessness [None]
  - Fatigue [None]
  - Dry eye [None]
  - Dehydration [None]
  - Migraine [None]
  - Pollakiuria [None]

NARRATIVE: CASE EVENT DATE: 20250628
